FAERS Safety Report 17601333 (Version 1)
Quarter: 2020Q1

REPORT INFORMATION
  Report Type: Spontaneous
  Country: RU (occurrence: RU)
  Receive Date: 20200331
  Receipt Date: 20200331
  Transmission Date: 20200409
  Serious: Yes (Other)
  Sender: FDA-Public Use
  Company Number: RU-SUN PHARMACEUTICAL INDUSTRIES LTD-2020R1-241517

PATIENT
  Age: 35 Year
  Sex: Male

DRUGS (1)
  1. CIFRAN CT [Suspect]
     Active Substance: CIPROFLOXACIN\TINIDAZOLE
     Indication: SEPSIS
     Dosage: 1 TABLET, BID
     Dates: start: 20200320

REACTIONS (1)
  - Lymphadenopathy [Not Recovered/Not Resolved]

NARRATIVE: CASE EVENT DATE: 20200323
